FAERS Safety Report 24098559 (Version 1)
Quarter: 2024Q3

REPORT INFORMATION
  Report Type: Spontaneous
  Country: US (occurrence: US)
  Receive Date: 20240716
  Receipt Date: 20240716
  Transmission Date: 20241017
  Serious: No
  Sender: Harrow Health
  Company Number: US-IMP-2024000431

PATIENT
  Age: 70 Year
  Sex: Female

DRUGS (1)
  1. VEVYE [Suspect]
     Active Substance: CYCLOSPORINE
     Indication: Dry eye
     Dosage: 1 DROP EACH EYE TWICE DAILY
     Route: 065
     Dates: start: 20240618, end: 20240621

REACTIONS (2)
  - Adverse event [Unknown]
  - Product use issue [Unknown]
